FAERS Safety Report 14527319 (Version 2)
Quarter: 2018Q1

REPORT INFORMATION
  Report Type: Spontaneous
  Country: JP (occurrence: JP)
  Receive Date: 20180213
  Receipt Date: 20180227
  Transmission Date: 20180509
  Serious: Yes (Other)
  Sender: FDA-Public Use
  Company Number: JP-009507513-1802JPN000683J

PATIENT
  Age: 37 Year
  Sex: Male
  Weight: 66 kg

DRUGS (8)
  1. FENTANYL CITRATE. [Suspect]
     Active Substance: FENTANYL CITRATE
     Indication: INDUCTION OF ANAESTHESIA
     Dosage: 100 MICROGRAM, UNK
     Route: 051
  2. FENTANYL CITRATE. [Suspect]
     Active Substance: FENTANYL CITRATE
     Dosage: 100 MICROGRAM, UNK
     Route: 051
  3. ESLAX INTRAVENOUS 25MG/2.5ML [Suspect]
     Active Substance: ROCURONIUM BROMIDE
     Indication: NEUROMUSCULAR BLOCKING THERAPY
     Dosage: 50 MG, UNK
     Route: 042
  4. PROPOFOL. [Suspect]
     Active Substance: PROPOFOL
     Indication: INDUCTION OF ANAESTHESIA
     Dosage: 100 MG, UNK
     Route: 051
  5. FLURBIPROFEN AXETIL [Suspect]
     Active Substance: FLURBIPROFEN AXETIL
     Dosage: 100 MICROGRAM, UNK
     Route: 051
  6. BRIDION [Suspect]
     Active Substance: SUGAMMADEX
     Indication: NEUROMUSCULAR BLOCKADE REVERSAL
     Dosage: 122 MG, QD
     Route: 042
     Dates: start: 201708, end: 201708
  7. SEVOFLURANE. [Suspect]
     Active Substance: SEVOFLURANE
     Indication: MAINTENANCE OF ANAESTHESIA
     Route: 055
  8. FLOMOXEF SODIUM [Concomitant]
     Active Substance: FLOMOXEF SODIUM
     Dosage: 1 G, UNK
     Route: 051

REACTIONS (1)
  - Generalised tonic-clonic seizure [Recovered/Resolved]

NARRATIVE: CASE EVENT DATE: 201708
